FAERS Safety Report 8058951-5 (Version None)
Quarter: 2012Q1

REPORT INFORMATION
  Report Type: 
  Country: None (occurrence: None)
  Receive Date: 20120111
  Receipt Date: 20120105
  Transmission Date: 20120608
  Serious: Yes (Life-Threatening)
  Sender: FDA-Public Use
  Company Number: AUR-APL-2012-00254

PATIENT
  Age: 59 Year
  Sex: Female
  Weight: 104.7 kg

DRUGS (21)
  1. ESTRADIOL VALERATE [Concomitant]
  2. VENTOLIN [Concomitant]
  3. CETIRIZINE (CETIRIZINE) [Concomitant]
  4. CLIMAVAL (ESCTRADIOL VALERATE) [Concomitant]
  5. ACETAMINOPHEN W/ CODEINE [Concomitant]
  6. PREDNISOLONE [Suspect]
     Indication: PRODUCT USED FOR UNKNOWN INDICATION
     Dosage: 30 MG
     Dates: start: 20110816, end: 20110826
  7. NICOTINE [Concomitant]
  8. BENDROFLUMETHIAZIDE (BENDROFLUMETHIAZIDE) [Concomitant]
  9. FUROSEMIDE [Concomitant]
  10. TIOTROPIUM BROMIDE (TIOTROPIUM BROMIDE) [Concomitant]
  11. FLUOXETINE [Concomitant]
  12. AMOXICILLIN [Suspect]
     Indication: PRODUCT USED FOR UNKNOWN INDICATION
     Dates: start: 20110816, end: 20110821
  13. LISINOPRIL [Suspect]
     Indication: PRODUCT USED FOR UNKNOWN INDICATION
     Dates: start: 20101101
  14. FUSIDIC ACID [Concomitant]
  15. UNIPHYL [Concomitant]
  16. AMLODIPINE [Concomitant]
  17. EPIPEN (EPINEPRHRINE) [Concomitant]
  18. ERYTHROMYCIN [Concomitant]
  19. FLUCONAZOLE [Concomitant]
  20. FLUTICASONE PROPIONATE [Concomitant]
  21. OMEPRAZOLE [Concomitant]

REACTIONS (5)
  - NASAL DRYNESS [None]
  - OROPHARYNGEAL PAIN [None]
  - APPARENT LIFE THREATENING EVENT [None]
  - BRONCHOSPASM [None]
  - ANAPHYLACTIC REACTION [None]
